FAERS Safety Report 10591638 (Version 3)
Quarter: 2015Q2

REPORT INFORMATION
  Report Type: Report from Study
  Country: US (occurrence: US)
  Receive Date: 20141118
  Receipt Date: 20150424
  Transmission Date: 20150821
  Serious: Yes (Hospitalization, Other)
  Sender: FDA-Public Use
  Company Number: US-GLAXOSMITHKLINE-US2014GSK020474

PATIENT
  Age: 56 Year
  Sex: Male
  Weight: 79 kg

DRUGS (9)
  1. SYMBICORT [Concomitant]
     Active Substance: BUDESONIDE\FORMOTEROL FUMARATE DIHYDRATE
  2. HEPSERA [Concomitant]
     Active Substance: ADEFOVIR DIPIVOXIL
     Dosage: 10 MG, UNK
  3. HYTONE [Concomitant]
     Active Substance: HYDROCORTISONE
     Dosage: 2.5 %, UNK
  4. SYNTHROID [Concomitant]
     Active Substance: LEVOTHYROXINE SODIUM
     Dosage: 25 UG, UNK
  5. PAZOPANIB TABLET [Suspect]
     Active Substance: PAZOPANIB
     Indication: CHOLANGIOCARCINOMA
     Dosage: 800 MG, QD
     Route: 048
     Dates: start: 20141015
  6. TRAMETINIB TABLET [Suspect]
     Active Substance: TRAMETINIB
     Indication: CHOLANGIOCARCINOMA
     Dosage: 2 MG, QD
     Route: 048
     Dates: start: 20141015
  7. DOXYCYCLINE. [Concomitant]
     Active Substance: DOXYCYCLINE
  8. ENTECAVIR. [Concomitant]
     Active Substance: ENTECAVIR
  9. LISINOPRIL. [Concomitant]
     Active Substance: LISINOPRIL
     Dosage: 10 MG, UNK

REACTIONS (1)
  - Acute myocardial infarction [Recovered/Resolved]

NARRATIVE: CASE EVENT DATE: 20141109
